FAERS Safety Report 8814203 (Version 1)
Quarter: 2012Q4

REPORT INFORMATION
  Report Type: Spontaneous
  Country: US (occurrence: None)
  Receive Date: 20120926
  Receipt Date: 20120926
  Transmission Date: 20130627
  Serious: Yes (Life-Threatening, Hospitalization)
  Sender: FDA-Public Use
  Company Number: None

PATIENT
  Age: 35 Year
  Sex: Male
  Weight: 81.65 kg

DRUGS (2)
  1. CHANTIX [Suspect]
     Indication: CESSATION OF SMOKING
     Route: 048
     Dates: start: 20120715, end: 20120922
  2. CHANTIX [Suspect]
     Route: 048
     Dates: start: 20120715, end: 20120922

REACTIONS (6)
  - Abnormal behaviour [None]
  - Self-injurious ideation [None]
  - Tearfulness [None]
  - Nightmare [None]
  - Suicidal ideation [None]
  - Anxiety [None]
